FAERS Safety Report 5952521-8 (Version None)
Quarter: 2008Q4

REPORT INFORMATION
  Report Type: 
  Country: None (occurrence: None)
  Receive Date: 20081113
  Receipt Date: 20081106
  Transmission Date: 20090506
  Serious: Yes (Other)
  Sender: FDA-Public Use
  Company Number: GB-PFIZER INC-2008094359

PATIENT
  Age: 68 Year
  Sex: Male
  Weight: 67 kg

DRUGS (3)
  1. ATORVASTATIN CALCIUM [Suspect]
     Indication: HYPERCHOLESTEROLAEMIA
     Route: 048
     Dates: start: 20071220, end: 20081001
  2. DERMOL [Concomitant]
     Dates: start: 20080822
  3. ALBUTEROL SULFATE [Concomitant]
     Dates: end: 20080822

REACTIONS (1)
  - CHANGE OF BOWEL HABIT [None]
